FAERS Safety Report 4288516-2 (Version None)
Quarter: 2004Q1

REPORT INFORMATION
  Report Type: 
  Country: None (occurrence: None)
  Receive Date: 20040205
  Receipt Date: 20040123
  Transmission Date: 20041129
  Serious: Yes (Hospitalization, Disabling, Other)
  Sender: FDA-Public Use
  Company Number: 2004000199

PATIENT
  Age: 71 Year
  Sex: Male

DRUGS (13)
  1. LOPID [Suspect]
     Indication: ILL-DEFINED DISORDER
     Dosage: ORAL
     Route: 048
     Dates: end: 20031230
  2. DILANTIN [Suspect]
     Indication: CONVULSION
  3. LIPITOR [Suspect]
     Indication: HYPERCHOLESTEROLAEMIA
  4. INSULIN [Concomitant]
  5. CELECOXIB (CELECOXIB) [Concomitant]
  6. GLIMEPIRIDE [Concomitant]
  7. PIOGLITZAONE (PIOGLITAZONE) [Concomitant]
  8. METOPROLOL SUCCINATE [Concomitant]
  9. CALCIUM ACETATE (CALCIUM ACETATE) [Concomitant]
  10. SODIUM BICARBONATE IN PLASTIC CONTAINER [Concomitant]
  11. ENALEPRIL (ENALAPRIL) [Concomitant]
  12. LEVOTHYROXINE SODIUM [Concomitant]
  13. CLOPIDOGREL BISULFATE [Concomitant]

REACTIONS (6)
  - BIOPSY MUSCLE ABNORMAL [None]
  - BLOOD CREATINE PHOSPHOKINASE INCREASED [None]
  - DIABETES MELLITUS [None]
  - DRUG LEVEL BELOW THERAPEUTIC [None]
  - PARAPARESIS [None]
  - TREATMENT NONCOMPLIANCE [None]
